FAERS Safety Report 6676368-2 (Version None)
Quarter: 2010Q2

REPORT INFORMATION
  Report Type: 
  Country: None (occurrence: None)
  Receive Date: 20100408
  Receipt Date: 20100322
  Transmission Date: 20101027
  Serious: Yes (Hospitalization)
  Sender: FDA-Public Use
  Company Number: 1-21815504

PATIENT
  Age: 50 Year
  Sex: Female
  Weight: 52.1637 kg

DRUGS (7)
  1. NYSTATIN + TRIAMCINOLONE ACETONIDE [Suspect]
     Indication: TINEA VERSICOLOUR
     Dosage: 3 TIMES DAILY, TOPICAL
     Route: 061
  2. METFORMIN HCL [Suspect]
     Indication: DIABETES MELLITUS
     Dosage: 1000 MG, 2 TIMES DAILY, ORAL
     Route: 048
     Dates: end: 20091001
  3. LANTUS [Suspect]
     Indication: DIABETES MELLITUS
     Dosage: 8-12 U, SUBCUTANEOUS
     Route: 058
     Dates: end: 20091001
  4. NOVOLOG [Suspect]
     Indication: DIABETES MELLITUS
     Dosage: AS NEEDED; SUBCUTANEOUS
     Route: 058
     Dates: end: 20091001
  5. FENTANYL-25 [Concomitant]
  6. PHENERGAN (PROMETHAZINE) [Concomitant]
  7. LOMOTIL (DIPHENOXYLATE AND ATROPINE) [Concomitant]

REACTIONS (5)
  - APPLICATION SITE ERYTHEMA [None]
  - CONVULSION [None]
  - DEPRESSED LEVEL OF CONSCIOUSNESS [None]
  - ENCEPHALOPATHY [None]
  - HYPOGLYCAEMIA [None]
